FAERS Safety Report 7448158-4 (Version None)
Quarter: 2011Q2

REPORT INFORMATION
  Report Type: 
  Country: None (occurrence: None)
  Receive Date: 20110429
  Receipt Date: 20100830
  Transmission Date: 20111010
  Serious: No
  Sender: FDA-Public Use
  Company Number: US-ASTRAZENECA-2009SE26906

PATIENT
  Age: 13 Year
  Sex: Male
  Weight: 38.6 kg

DRUGS (2)
  1. NEXIUM [Suspect]
     Route: 048
  2. ALLEGRA [Concomitant]

REACTIONS (2)
  - ABDOMINAL DISCOMFORT [None]
  - HEADACHE [None]
